FAERS Safety Report 13617370 (Version 1)
Quarter: 2017Q2

REPORT INFORMATION
  Report Type: Spontaneous
  Country: US (occurrence: US)
  Receive Date: 20170606
  Receipt Date: 20170606
  Transmission Date: 20170830
  Serious: No
  Sender: FDA-Public Use
  Company Number: US-SA-2017SA024927

PATIENT
  Age: 61 Year
  Sex: Male
  Weight: 104.32 kg

DRUGS (7)
  1. LANTUS [Suspect]
     Active Substance: INSULIN GLARGINE
     Indication: TYPE 2 DIABETES MELLITUS
     Dosage: DOSE:25 UNIT(S)
     Route: 065
     Dates: start: 201004
  2. ASPIRIN. [Concomitant]
     Active Substance: ASPIRIN
     Dates: start: 201604
  3. LANTUS [Suspect]
     Active Substance: INSULIN GLARGINE
     Indication: TYPE 2 DIABETES MELLITUS
     Dosage: DOSE:25 UNIT(S)
     Route: 065
     Dates: start: 201004
  4. PRAVASTATIN. [Concomitant]
     Active Substance: PRAVASTATIN
     Dates: start: 201604
  5. LANTUS [Suspect]
     Active Substance: INSULIN GLARGINE
     Indication: TYPE 2 DIABETES MELLITUS
     Dosage: DOSE:30 UNIT(S)
     Route: 065
  6. LISINOPRIL. [Concomitant]
     Active Substance: LISINOPRIL
  7. FENOFIBRATE. [Concomitant]
     Active Substance: FENOFIBRATE
     Dates: start: 201604

REACTIONS (4)
  - Drug ineffective [Unknown]
  - Glycosylated haemoglobin increased [Unknown]
  - Blood glucose increased [Recovered/Resolved]
  - Weight decreased [Unknown]

NARRATIVE: CASE EVENT DATE: 20170115
